FAERS Safety Report 8011036-6 (Version None)
Quarter: 2011Q4

REPORT INFORMATION
  Report Type: 
  Country: None (occurrence: None)
  Receive Date: 20111228
  Receipt Date: 20111216
  Transmission Date: 20120403
  Serious: Yes (Death, Other)
  Sender: FDA-Public Use
  Company Number: HU-ELI_LILLY_AND_COMPANY-HU201108002964

PATIENT
  Age: 28 Year
  Sex: Female

DRUGS (3)
  1. OLANZAPINE [Suspect]
     Dosage: 405 MG, UNKNOWN
     Dates: start: 20110801
  2. FRONTIN [Concomitant]
     Dosage: 0.25 MG, OCCASIONALLY IN THE EVENING
  3. OLANZAPINE [Suspect]
     Indication: SCHIZOPHRENIA, PARANOID TYPE
     Dosage: 300 MG, OTHER
     Route: 030
     Dates: start: 20101201, end: 20110801

REACTIONS (3)
  - SUICIDE ATTEMPT [None]
  - COMPLETED SUICIDE [None]
  - DRUG INEFFECTIVE [None]
